FAERS Safety Report 17833315 (Version 1)
Quarter: 2020Q2

REPORT INFORMATION
  Report Type: Spontaneous
  Country: US (occurrence: US)
  Receive Date: 20200528
  Receipt Date: 20200528
  Transmission Date: 20200714
  Serious: Yes (Other)
  Sender: FDA-Public Use
  Company Number: US-ROCHE-2603109

PATIENT
  Age: 67 Year
  Sex: Female
  Weight: 74 kg

DRUGS (1)
  1. RITUXAN [Suspect]
     Active Substance: RITUXIMAB
     Indication: NON-HODGKIN^S LYMPHOMA
     Route: 042
     Dates: start: 201710

REACTIONS (8)
  - Eye disorder [Unknown]
  - Dacryostenosis acquired [Unknown]
  - Sinus disorder [Unknown]
  - Eye swelling [Unknown]
  - Gait disturbance [Not Recovered/Not Resolved]
  - Breast cancer metastatic [Unknown]
  - Visual impairment [Not Recovered/Not Resolved]
  - Eyelid cyst [Unknown]

NARRATIVE: CASE EVENT DATE: 20200402
